FAERS Safety Report 4443626-1 (Version None)
Quarter: 2004Q3

REPORT INFORMATION
  Report Type: 
  Country: None (occurrence: None)
  Receive Date: 20040908
  Receipt Date: 19980730
  Transmission Date: 20050211
  Serious: Yes (Death, Hospitalization)
  Sender: FDA-Public Use
  Company Number: JP-GLAXOSMITHKLINE-A0287664A

PATIENT
  Age: 63 Year
  Sex: Male

DRUGS (11)
  1. CARVEDILOL [Suspect]
     Indication: CARDIAC FAILURE CONGESTIVE
     Route: 048
     Dates: start: 19980220, end: 19980625
  2. ALLOPURINOL [Concomitant]
     Dosage: 200MG PER DAY
     Dates: start: 19960209, end: 19980625
  3. ALUMINIUM + MAGNESIUM HYDROXIDE [Concomitant]
     Dosage: 36ML PER DAY
     Dates: start: 19980626, end: 19980628
  4. AZOSEMIDE [Concomitant]
     Dosage: 30MG PER DAY
     Dates: start: 19970725, end: 19980625
  5. DIGOXIN [Concomitant]
     Dosage: .125MG PER DAY
     Dates: start: 19960307, end: 19980626
  6. SPIRONOLACTONE [Concomitant]
     Dosage: 25MG PER DAY
     Dates: start: 19960607, end: 19980625
  7. ENALAPRIL [Concomitant]
     Dosage: 2.5MG PER DAY
     Dates: start: 19950725, end: 19980625
  8. FAMOTIDINE [Concomitant]
     Dates: start: 19980626, end: 19980628
  9. FUROSEMIDE [Concomitant]
     Dosage: 40MG PER DAY
     Dates: start: 19950725, end: 19980625
  10. MEXILETINE HCL [Concomitant]
     Dosage: 150MG PER DAY
     Dates: start: 19950725, end: 19980625
  11. CRAVIT [Concomitant]
     Dates: start: 19980210, end: 19980310

REACTIONS (8)
  - CARDIAC FAILURE [None]
  - CEREBRAL INFARCTION [None]
  - CHEYNE-STOKES RESPIRATION [None]
  - MULTI-ORGAN FAILURE [None]
  - PULMONARY OEDEMA [None]
  - RESPIRATORY FAILURE [None]
  - SHOCK [None]
  - THERAPY NON-RESPONDER [None]
